FAERS Safety Report 5105402-6 (Version None)
Quarter: 2006Q3

REPORT INFORMATION
  Report Type: 
  Country: None (occurrence: None)
  Receive Date: 20060915
  Receipt Date: 20060904
  Transmission Date: 20061208
  Serious: Yes (Death, Other)
  Sender: FDA-Public Use
  Company Number: GB-ABBOTT-06P-167-0343753-00

PATIENT

DRUGS (4)
  1. NORVIR [Suspect]
     Indication: DRUG EXPOSURE DURING PREGNANCY
  2. ATAZANAVIR [Suspect]
     Indication: DRUG EXPOSURE DURING PREGNANCY
  3. VIREAD [Suspect]
     Indication: DRUG EXPOSURE DURING PREGNANCY
  4. ABACAVIR SULFATE [Suspect]
     Indication: DRUG EXPOSURE DURING PREGNANCY

REACTIONS (1)
  - STILLBIRTH [None]
